FAERS Safety Report 8921664 (Version 3)
Quarter: 2013Q1

REPORT INFORMATION
  Report Type: Report from Study
  Country: US (occurrence: US)
  Receive Date: 20121121
  Receipt Date: 20130109
  Transmission Date: 20140127
  Serious: Yes (Hospitalization)
  Sender: FDA-Public Use
  Company Number: US-JNJFOC-20121110418

PATIENT
  Age: 17 Year
  Sex: Female
  Weight: 47.4 kg

DRUGS (1)
  1. REMICADE [Suspect]
     Indication: INFLAMMATORY BOWEL DISEASE
     Route: 042
     Dates: start: 20110104

REACTIONS (1)
  - Ovarian cyst [Recovered/Resolved]
